FAERS Safety Report 23200890 (Version 1)
Quarter: 2023Q4

REPORT INFORMATION
  Report Type: Report from Study
  Country: CZ (occurrence: CZ)
  Receive Date: 20231118
  Receipt Date: 20231118
  Transmission Date: 20240109
  Serious: Yes (Other)
  Sender: FDA-Public Use
  Company Number: CZ-ABBVIE-5495969

PATIENT
  Age: 26 Year
  Sex: Male

DRUGS (1)
  1. SKYRIZI [Suspect]
     Active Substance: RISANKIZUMAB-RZAA
     Indication: Psoriasis
     Dosage: 150 MG IN WEEK 0 AND 4, THEN EVERY 12 WEEKS
     Route: 058
     Dates: start: 20210621

REACTIONS (5)
  - Papillary thyroid cancer [Unknown]
  - Gynaecomastia [Unknown]
  - Hypercalcaemia [Unknown]
  - Liver disorder [Unknown]
  - Pseudogynaecomastia [Unknown]

NARRATIVE: CASE EVENT DATE: 20230801
